FAERS Safety Report 6558413-8 (Version None)
Quarter: 2010Q1

REPORT INFORMATION
  Report Type: 
  Country: None (occurrence: None)
  Receive Date: 20100129
  Receipt Date: 20100120
  Transmission Date: 20100710
  Serious: Yes (Death, Hospitalization)
  Sender: FDA-Public Use
  Company Number: ES-JNJFOC-20070700458

PATIENT
  Sex: Female
  Weight: 74 kg

DRUGS (2)
  1. DOXORUBICIN HCL [Suspect]
     Indication: BREAST CANCER METASTATIC
     Dosage: 1 CYCLE EVERY 28 DAYS -
     Route: 042
     Dates: start: 20070425, end: 20070523
  2. DEXCHLORPHENIRAMINE [Concomitant]
     Route: 065

REACTIONS (3)
  - BREAST CANCER METASTATIC [None]
  - FOLLICULITIS [None]
  - PAIN [None]
